FAERS Safety Report 19603448 (Version 5)
Quarter: 2024Q4

REPORT INFORMATION
  Report Type: Report from Study
  Country: CA (occurrence: None)
  Receive Date: 20210723
  Receipt Date: 20241128
  Transmission Date: 20250114
  Serious: Yes (Other)
  Sender: ORION
  Company Number: CA-PFIZER INC-2021894423

PATIENT
  Age: 52 Year
  Sex: Female

DRUGS (21)
  1. METHOTREXATE [Suspect]
     Active Substance: METHOTREXATE
     Indication: Product used for unknown indication
  2. METHOTREXATE [Suspect]
     Active Substance: METHOTREXATE
  3. METHOTREXATE [Suspect]
     Active Substance: METHOTREXATE
  4. METHOTREXATE [Suspect]
     Active Substance: METHOTREXATE
  5. METHOTREXATE [Suspect]
     Active Substance: METHOTREXATE
  6. COLCHICINE [Suspect]
     Active Substance: COLCHICINE
     Indication: Product used for unknown indication
  7. DICLOFENAC [Suspect]
     Active Substance: DICLOFENAC
     Indication: Product used for unknown indication
  8. ERELZI [Suspect]
     Active Substance: ETANERCEPT-SZZS
     Indication: Ankylosing spondylitis
  9. LEFLUNOMIDE [Suspect]
     Active Substance: LEFLUNOMIDE
     Indication: Product used for unknown indication
  10. LEFLUNOMIDE [Suspect]
     Active Substance: LEFLUNOMIDE
  11. ARAVA [Concomitant]
     Active Substance: LEFLUNOMIDE
  12. DESOXIMETASONE [Concomitant]
     Active Substance: DESOXIMETASONE
  13. DESOXIMETASONE [Concomitant]
     Active Substance: DESOXIMETASONE
  14. INDOMETHACIN [Concomitant]
     Active Substance: INDOMETHACIN
     Dosage: 5 UNKNOWN REGIMENS
  15. NAPROXEN [Concomitant]
     Active Substance: NAPROXEN
     Dosage: 4 UNKNOWN REGIMENS
  16. PREDNISONE [Concomitant]
     Active Substance: PREDNISONE
  17. PREDNISONE [Concomitant]
     Active Substance: PREDNISONE
  18. VIOXX [Concomitant]
     Active Substance: ROFECOXIB
  19. VIOXX [Concomitant]
     Active Substance: ROFECOXIB
  20. VIOXX [Concomitant]
     Active Substance: ROFECOXIB
     Dosage: UNKNOWN
  21. GOLD [Concomitant]
     Active Substance: GOLD

REACTIONS (7)
  - Drug ineffective [Unknown]
  - Episcleritis [Unknown]
  - Uveitis [Unknown]
  - C-reactive protein abnormal [Unknown]
  - Crohn^s disease [Unknown]
  - Drug intolerance [Unknown]
  - Product use issue [Unknown]
